FAERS Safety Report 8952079 (Version 1)
Quarter: 2012Q4

REPORT INFORMATION
  Report Type: 
  Country: US (occurrence: US)
  Receive Date: 20121204
  Receipt Date: 20121204
  Transmission Date: 20130627
  Serious: No
  Sender: FDA-Public Use
  Company Number: US-AMGEN-USASP2012065053

PATIENT
  Age: 14 Year
  Sex: Female
  Weight: 47.17 kg

DRUGS (1)
  1. ENBREL [Suspect]
     Indication: JUVENILE ARTHRITIS
     Dosage: 18.75 mg, 2 times/wk
     Route: 058
     Dates: start: 20120924

REACTIONS (1)
  - Urticaria [Not Recovered/Not Resolved]
